FAERS Safety Report 7046962-8 (Version None)
Quarter: 2010Q4

REPORT INFORMATION
  Report Type: 
  Country: None (occurrence: None)
  Receive Date: 20101015
  Receipt Date: 20101011
  Transmission Date: 20110411
  Serious: Yes (Hospitalization)
  Sender: FDA-Public Use
  Company Number: FR-BRISTOL-MYERS SQUIBB COMPANY-15329634

PATIENT
  Age: 50 Year
  Sex: Male

DRUGS (8)
  1. REYATAZ [Interacting]
     Indication: HIV INFECTION
     Route: 048
     Dates: start: 20040101, end: 20100401
  2. NORVIR [Interacting]
     Indication: HIV INFECTION
     Route: 048
     Dates: start: 20040101
  3. PREZISTA [Interacting]
     Indication: HIV INFECTION
     Route: 048
     Dates: start: 20100501
  4. DIERGOSPRAY [Interacting]
     Indication: MIGRAINE
     Route: 055
     Dates: start: 20050101, end: 20100922
  5. TRUVADA [Suspect]
     Dates: start: 20040101
  6. CRESTOR [Concomitant]
  7. DEPAKENE [Concomitant]
     Dosage: 1 DF = 2 TABS
  8. KEPPRA [Concomitant]
     Dosage: 1 DF= 1 A? TABLETS

REACTIONS (5)
  - CHEST PAIN [None]
  - DIZZINESS [None]
  - DRUG INTERACTION [None]
  - ERGOT POISONING [None]
  - MIGRAINE [None]
